FAERS Safety Report 5093653-9 (Version None)
Quarter: 2006Q3

REPORT INFORMATION
  Report Type: 
  Country: None (occurrence: None)
  Receive Date: 20060829
  Receipt Date: 20060814
  Transmission Date: 20061208
  Serious: Yes (Death)
  Sender: FDA-Public Use
  Company Number: 2006S1006412

PATIENT
  Age: 49 Year
  Sex: Male

DRUGS (11)
  1. CLOZAPINE [Suspect]
     Indication: SCHIZOPHRENIA, UNDIFFERENTIATED TYPE
     Dosage: 25 MG; BID; PO
     Route: 048
     Dates: start: 20030101, end: 20060601
  2. CLOZAPINE [Suspect]
     Indication: SCHIZOPHRENIA, UNDIFFERENTIATED TYPE
     Dosage: 200 MG; BID; PO
     Route: 048
     Dates: start: 20030101, end: 20060601
  3. TRAZODONE HCL [Concomitant]
  4. CARVEDILOL [Concomitant]
  5. DIGOXIN [Concomitant]
  6. VALSARTAN [Concomitant]
  7. GLIPIZIDE [Concomitant]
  8. LISINOPRIL [Concomitant]
  9. METFORMIN [Concomitant]
  10. PIROXICAM [Concomitant]
  11. OMEPRAZOLE [Concomitant]

REACTIONS (1)
  - HYPOGLYCAEMIC COMA [None]
